FAERS Safety Report 4511379-4 (Version None)
Quarter: 2004Q4

REPORT INFORMATION
  Report Type: 
  Country: None (occurrence: None)
  Receive Date: 20041122
  Receipt Date: 20041122
  Transmission Date: 20050328
  Serious: No
  Sender: FDA-Public Use
  Company Number: None

PATIENT
  Sex: Male
  Weight: 5.3 kg

DRUGS (12)
  1. FLUCONAZOLE [Suspect]
     Indication: DERMATITIS DIAPER
     Dosage: 28 MG ONCE IV
     Route: 042
     Dates: start: 20041026, end: 20041026
  2. FLUCONAZOLE [Suspect]
     Indication: FUNGAL INFECTION
     Dosage: 28 MG ONCE IV
     Route: 042
     Dates: start: 20041026, end: 20041026
  3. FLUCONAZOLE [Suspect]
     Indication: PROPHYLAXIS
     Dosage: 28 MG ONCE IV
     Route: 042
     Dates: start: 20041026, end: 20041026
  4. FLUCONAZOLE [Suspect]
     Indication: SYSTEMIC CANDIDA
     Dosage: 28 MG ONCE IV
     Route: 042
     Dates: start: 20041026, end: 20041026
  5. FLUCONAZOLE SUSPENSION  10MG/ML ROXANE LABORATORIES [Suspect]
     Dosage: 14 MG EVERY DAY ORAL
     Route: 048
     Dates: start: 20041027, end: 20041029
  6. TOBRAMYCIN [Concomitant]
  7. TIMENTIN [Concomitant]
  8. VANCOMYCIN [Concomitant]
  9. SEPTRA [Concomitant]
  10. LANSOPRAZOLE [Concomitant]
  11. ALBUTEROL [Concomitant]
  12. FUROSEMIDE [Concomitant]

REACTIONS (1)
  - LIVER FUNCTION TEST ABNORMAL [None]
